FAERS Safety Report 23944294 (Version 1)
Quarter: 2024Q2

REPORT INFORMATION
  Report Type: Spontaneous
  Country: US (occurrence: US)
  Receive Date: 20240606
  Receipt Date: 20240606
  Transmission Date: 20240716
  Serious: No
  Sender: FDA-Public Use
  Company Number: US-TEVA-VS-3201530

PATIENT

DRUGS (23)
  1. TAMSULOSIN [Suspect]
     Active Substance: TAMSULOSIN
     Route: 065
  2. aspirin (acetylsalicylic acid] (ASPIRIN [ACETYLSALICYLIC ACID)) [Concomitant]
     Dosage: 1 DAILY, YEAR
  3. ATENOLOL [Concomitant]
     Active Substance: ATENOLOL
     Indication: Blood pressure measurement
  4. menthol (BIOFREEZE [MENTHOL] [Concomitant]
     Indication: Back pain
     Dosage: DAILY
  5. bumetanide (BUMETANIDE [Concomitant]
     Dosage: 2 (DAILY), 1YEAR
     Route: 065
     Dates: start: 2023
  6. COLCHICINE [Concomitant]
     Active Substance: COLCHICINE
     Dosage: 2 (DAILY) 1 YEAR
     Route: 065
     Dates: start: 2023
  7. sacubitril, valsartan (ENTRESTO) [Concomitant]
     Indication: Product used for unknown indication
     Dosage: 93-103MG,1DAILY
     Route: 065
  8. FLUTICASONE [Concomitant]
     Active Substance: FLUTICASONE
     Route: 065
  9. JARDIANCE [Concomitant]
     Active Substance: EMPAGLIFLOZIN
     Indication: Product used for unknown indication
     Dosage: 1 DAILY
  10. linaclotide (LINZESS) [Concomitant]
     Dosage: DOSAGE: 145 MCG 145MCG 1 DAILY
     Route: 065
  11. MINOXIDIL [Concomitant]
     Active Substance: MINOXIDIL
     Indication: Blood pressure measurement
     Dosage: 1.5 (DAILY)
  12. POTASSIUM [Concomitant]
     Active Substance: POTASSIUM
     Indication: Blood potassium increased
     Dosage: 1 DAILY
     Route: 065
  13. PRAVASTATIN [Concomitant]
     Active Substance: PRAVASTATIN
     Indication: Product used for unknown indication
     Dosage: 1 DAILY
     Route: 065
  14. SPIRONOLACTONE [Concomitant]
     Active Substance: SPIRONOLACTONE
     Indication: Product used for unknown indication
     Dosage: 1 DAILY
     Route: 065
  15. TRELEGY (fluticasone furoate, umeclidinium bromide, vijanterol trif... [Concomitant]
     Dosage: DOSAGE: 20 MCG 1 DAILY 20 MCG
     Route: 065
  16. VALSARTAN [Concomitant]
     Active Substance: VALSARTAN
     Indication: Product used for unknown indication
     Dosage: DAILY
  17. PANTOPRAZOLE [Concomitant]
     Active Substance: PANTOPRAZOLE
     Indication: Dyspepsia
     Dosage: 1 DAILY
     Route: 065
  18. VITAMIN A [Concomitant]
     Active Substance: VITAMIN A
     Dosage: DOSAGE: 2400 MCG 2400 MCG, 6 MONTHS
  19. TRIAMTERENE [Concomitant]
     Active Substance: TRIAMTERENE
     Indication: Product used for unknown indication
     Dosage: 37.525 MG, DAILY
  20. AMVUTTRA [Concomitant]
     Active Substance: VUTRISIRAN
     Indication: Product used for unknown indication
     Dosage: (1 SHEET) EVERY 3 MONTHS
     Route: 065
  21. tafamidis (VYNDAMAX) [Concomitant]
     Indication: Blood disorder
     Route: 065
  22. ELIQUIS [Concomitant]
     Active Substance: APIXABAN
     Dosage: 2 DAILY
     Route: 065
  23. IRON [Concomitant]
     Active Substance: IRON
     Indication: Product used for unknown indication
     Dosage: 1 DAILY
     Route: 065

REACTIONS (2)
  - Back pain [Recovered/Resolved]
  - Somnolence [Unknown]

NARRATIVE: CASE EVENT DATE: 20200101
